FAERS Safety Report 7519230-5 (Version None)
Quarter: 2011Q2

REPORT INFORMATION
  Report Type: 
  Country: None (occurrence: None)
  Receive Date: 20110602
  Receipt Date: 20110304
  Transmission Date: 20111010
  Serious: No
  Sender: FDA-Public Use
  Company Number: US-BRISTOL-MYERS SQUIBB COMPANY-15506603

PATIENT
  Age: 67 Year
  Sex: Male

DRUGS (9)
  1. ASPIRIN [Concomitant]
  2. ZOCOR [Concomitant]
  3. KLOR-CON [Concomitant]
  4. KOMBIGLYZE XR [Suspect]
     Indication: TYPE 2 DIABETES MELLITUS
     Dosage: KOMBIGLYZE XR 2.5
     Route: 048
     Dates: start: 20110114, end: 20110117
  5. NORVASC [Concomitant]
  6. TYLENOL W/ CODEINE NO. 3 [Concomitant]
     Dosage: PRN
  7. NEXIUM [Concomitant]
  8. LOPRESSOR [Concomitant]
     Route: 048
  9. LASIX [Concomitant]

REACTIONS (1)
  - PRURITUS [None]
